FAERS Safety Report 19918833 (Version 1)
Quarter: 2021Q4

REPORT INFORMATION
  Report Type: Spontaneous
  Country: IN (occurrence: IN)
  Receive Date: 20211004
  Receipt Date: 20211004
  Transmission Date: 20220304
  Serious: Yes (Death)
  Sender: FDA-Public Use
  Company Number: IN-PFIZER INC-2021093846

PATIENT
  Age: 52 Year
  Sex: Female

DRUGS (3)
  1. LORLATINIB [Suspect]
     Active Substance: LORLATINIB
     Dosage: 100 MG, 1X/DAY
     Route: 048
     Dates: start: 20200812
  2. XARELTO [Concomitant]
     Active Substance: RIVAROXABAN
     Dosage: 100 MG
  3. CALCIUM [Concomitant]
     Active Substance: CALCIUM
     Dosage: 50 MG

REACTIONS (2)
  - Death [Fatal]
  - Weight increased [Unknown]
